FAERS Safety Report 14162322 (Version 5)
Quarter: 2018Q3

REPORT INFORMATION
  Report Type: Spontaneous
  Country: US (occurrence: US)
  Receive Date: 20171106
  Receipt Date: 20180730
  Transmission Date: 20181010
  Serious: Yes (Other)
  Sender: FDA-Public Use
  Company Number: US-PFIZER INC-2017474622

PATIENT
  Age: 53 Year
  Sex: Female

DRUGS (1)
  1. XELJANZ XR [Suspect]
     Active Substance: TOFACITINIB CITRATE
     Indication: RHEUMATOID ARTHRITIS
     Dosage: 11 MG, 1X/DAY
     Route: 048
     Dates: start: 20170620, end: 201806

REACTIONS (13)
  - Gait inability [Unknown]
  - Urinary tract infection [Not Recovered/Not Resolved]
  - Diarrhoea [Unknown]
  - Vomiting [Unknown]
  - Feeling abnormal [Unknown]
  - Body temperature increased [Unknown]
  - Kidney infection [Unknown]
  - Nerve compression [Unknown]
  - Influenza like illness [Unknown]
  - Nausea [Unknown]
  - Hormone level abnormal [Unknown]
  - Decreased appetite [Unknown]
  - Condition aggravated [Unknown]

NARRATIVE: CASE EVENT DATE: 201708
